FAERS Safety Report 7810264-X (Version None)
Quarter: 2011Q4

REPORT INFORMATION
  Report Type: 
  Country: None (occurrence: None)
  Receive Date: 20111012
  Receipt Date: 20110928
  Transmission Date: 20120403
  Serious: Yes (Other)
  Sender: FDA-Public Use
  Company Number: FR-ROCHE-1000895

PATIENT
  Age: 40 Year
  Sex: Male

DRUGS (4)
  1. IRINOTECAN HCL [Concomitant]
  2. LEUCOVORIN CALCIUM [Concomitant]
  3. AVASTIN [Suspect]
     Indication: COLON CANCER
     Route: 042
     Dates: start: 20091013, end: 20091027
  4. FLUOROURACIL [Concomitant]

REACTIONS (1)
  - PHLEBITIS [None]
